FAERS Safety Report 19573750 (Version 5)
Quarter: 2022Q1

REPORT INFORMATION
  Report Type: Report from Study
  Country: ES (occurrence: ES)
  Receive Date: 20210717
  Receipt Date: 20220330
  Transmission Date: 20220424
  Serious: Yes (Hospitalization, Other)
  Sender: FDA-Public Use
  Company Number: ES-TAKEDA-2021TUS042035

PATIENT
  Age: 53 Year
  Sex: Male

DRUGS (17)
  1. TEDUGLUTIDE [Suspect]
     Active Substance: TEDUGLUTIDE
     Indication: Short-bowel syndrome
     Dosage: 3.6 MILLIGRAM, QD
     Route: 042
     Dates: start: 20190130, end: 20210127
  2. TEDUGLUTIDE [Suspect]
     Active Substance: TEDUGLUTIDE
     Indication: Short-bowel syndrome
     Dosage: 3.6 MILLIGRAM, QD
     Route: 042
     Dates: start: 20190130, end: 20210127
  3. TEDUGLUTIDE [Suspect]
     Active Substance: TEDUGLUTIDE
     Indication: Short-bowel syndrome
     Dosage: 3.6 MILLIGRAM, QD
     Route: 042
     Dates: start: 20190130, end: 20210127
  4. TEDUGLUTIDE [Suspect]
     Active Substance: TEDUGLUTIDE
     Indication: Short-bowel syndrome
     Dosage: 3.6 MILLIGRAM, QD
     Route: 042
     Dates: start: 20190130, end: 20210127
  5. TEDUGLUTIDE [Suspect]
     Active Substance: TEDUGLUTIDE
     Dosage: UNK
     Route: 042
     Dates: start: 20200626
  6. TEDUGLUTIDE [Suspect]
     Active Substance: TEDUGLUTIDE
     Dosage: UNK
     Route: 042
     Dates: start: 20200626
  7. TEDUGLUTIDE [Suspect]
     Active Substance: TEDUGLUTIDE
     Dosage: UNK
     Route: 042
     Dates: start: 20200626
  8. TEDUGLUTIDE [Suspect]
     Active Substance: TEDUGLUTIDE
     Dosage: UNK
     Route: 042
     Dates: start: 20200626
  9. CHOLECALCIFEROL [Concomitant]
     Active Substance: CHOLECALCIFEROL
     Indication: Vitamin D deficiency
     Dosage: 25000 INTERNATIONAL UNIT, 1/WEEK
     Route: 048
     Dates: start: 20201111
  10. AMOXICILLIN\CLAVULANIC ACID [Concomitant]
     Active Substance: AMOXICILLIN\CLAVULANIC ACID
     Indication: Cholangitis acute
     Dosage: 875 MILLIGRAM, TID
     Route: 048
     Dates: start: 20200625, end: 20200704
  11. PHYTONADIONE [Concomitant]
     Active Substance: PHYTONADIONE
     Indication: Prothrombin time prolonged
     Dosage: 10 MILLIGRAM, QD
     Route: 042
     Dates: start: 20200621, end: 20200625
  12. ERTAPENEM [Concomitant]
     Active Substance: ERTAPENEM
     Indication: Cholangitis acute
     Dosage: 1 GRAM, QD
     Route: 042
     Dates: start: 20200621, end: 20200625
  13. CYANOCOBALAMIN [Concomitant]
     Active Substance: CYANOCOBALAMIN
     Indication: Vitamin B12 deficiency
     Dosage: 1 DOSAGE FORM, MONTHLY
     Route: 030
     Dates: start: 20190919
  14. ASPIRIN [Concomitant]
     Active Substance: ASPIRIN
     Indication: Vascular stent thrombosis
     Dosage: 100 MILLIGRAM, QD
     Route: 048
     Dates: start: 20190226
  15. CALCIFEDIOL [Concomitant]
     Active Substance: CALCIFEDIOL
     Indication: Osteoporosis
     Dosage: 0.26 UNK, Q2WEEKS, (0.266 CAPS)
     Route: 065
  16. GEMFIBROZIL [Concomitant]
     Active Substance: GEMFIBROZIL
     Indication: Dyslipidaemia
     Dosage: 600 MILLIGRAM, QD
     Route: 065
  17. OMEPRAZOLE [Concomitant]
     Active Substance: OMEPRAZOLE
     Indication: Prophylaxis
     Dosage: 20 MILLIGRAM, QD
     Route: 048
     Dates: start: 20210825

REACTIONS (3)
  - Anaemia [Recovered/Resolved]
  - Abdominal pain [Recovered/Resolved]
  - Ampullary polyp [Recovered/Resolved]

NARRATIVE: CASE EVENT DATE: 20210120
